FAERS Safety Report 19755124 (Version 1)
Quarter: 2021Q3

REPORT INFORMATION
  Report Type: Spontaneous
  Country: FR (occurrence: FR)
  Receive Date: 20210827
  Receipt Date: 20210827
  Transmission Date: 20211014
  Serious: Yes (Other)
  Sender: FDA-Public Use
  Company Number: FR-009507513-2108FRA005825

PATIENT
  Age: 75 Year
  Sex: Female

DRUGS (2)
  1. SIVEXTRO [Suspect]
     Active Substance: TEDIZOLID PHOSPHATE
     Indication: CORYNEBACTERIUM INFECTION
     Dosage: UNK
     Route: 048
     Dates: start: 202107
  2. MYCOBUTIN [Concomitant]
     Active Substance: RIFABUTIN
     Indication: CORYNEBACTERIUM INFECTION
     Dosage: UNK
     Dates: start: 202107

REACTIONS (3)
  - Off label use [Unknown]
  - Thrombocytopenia [Unknown]
  - Intentional product use issue [Unknown]

NARRATIVE: CASE EVENT DATE: 202107
